FAERS Safety Report 10028289 (Version 2)
Quarter: 2014Q1

REPORT INFORMATION
  Report Type: Report from Study
  Country: US (occurrence: US)
  Receive Date: 20140321
  Receipt Date: 20140321
  Transmission Date: 20141002
  Serious: Yes (Hospitalization)
  Sender: FDA-Public Use
  Company Number: US-ALEXION PHARMACEUTICALS INC.-A201200025

PATIENT
  Age: 44 Year
  Sex: Female

DRUGS (8)
  1. SOLIRIS [Suspect]
     Indication: MYELOPROLIFERATIVE DISORDER
     Dosage: 900 MG, Q2W
     Route: 042
  2. SOLIRIS [Suspect]
     Indication: OFF LABEL USE
  3. EXJADE [Concomitant]
     Dosage: UNK
  4. LOVENOX [Concomitant]
     Dosage: UNK
  5. CELEXA [Concomitant]
     Dosage: UNK
  6. SEROQUEL [Concomitant]
     Dosage: UNK
  7. METOPROLOL [Concomitant]
     Dosage: UNK
  8. CUBICIN [Concomitant]

REACTIONS (8)
  - Unevaluable event [Unknown]
  - Central venous catheter removal [Unknown]
  - Central venous catheterisation [Unknown]
  - Transfusion [Unknown]
  - Aphagia [Unknown]
  - Malaise [Unknown]
  - Abdominal pain [Unknown]
  - Off label use [Unknown]
